FAERS Safety Report 5312475-4 (Version None)
Quarter: 2007Q2

REPORT INFORMATION
  Report Type: 
  Country: None (occurrence: None)
  Receive Date: 20070430
  Receipt Date: 20061128
  Transmission Date: 20071010
  Serious: No
  Sender: FDA-Public Use
  Company Number: 2006UW26621

PATIENT
  Age: 69 Year
  Sex: Female
  Weight: 79.8 kg

DRUGS (7)
  1. NEXIUM [Suspect]
     Indication: REFLUX OESOPHAGITIS
     Route: 048
     Dates: start: 20020101
  2. NEXIUM [Suspect]
     Indication: POLYP
     Route: 048
     Dates: start: 20020101
  3. ZETIA [Concomitant]
  4. WELCHOL [Concomitant]
  5. TIAZAC [Concomitant]
  6. ZOLOFT [Concomitant]
  7. CLONAZEPAM [Concomitant]

REACTIONS (5)
  - ABDOMINAL PAIN [None]
  - ABNORMAL FAECES [None]
  - DEFAECATION URGENCY [None]
  - PAINFUL DEFAECATION [None]
  - VISION BLURRED [None]
